FAERS Safety Report 7273821-8 (Version None)
Quarter: 2011Q1

REPORT INFORMATION
  Report Type: 
  Country: None (occurrence: None)
  Receive Date: 20110203
  Receipt Date: 20110103
  Transmission Date: 20110831
  Serious: No
  Sender: FDA-Public Use
  Company Number: US-BAYER-2011-002738

PATIENT
  Sex: Female
  Weight: 104.31 kg

DRUGS (1)
  1. ULTRAVIST INJECTION PHARMACY BULK PACKAGE [Suspect]
     Indication: COMPUTERISED TOMOGRAM ABDOMEN
     Dosage: 100 ML, ONCE
     Route: 042
     Dates: start: 20101220, end: 20101220

REACTIONS (3)
  - VOMITING [None]
  - NAUSEA [None]
  - OCULAR HYPERAEMIA [None]
